FAERS Safety Report 7319051-2 (Version None)
Quarter: 2011Q1

REPORT INFORMATION
  Report Type: 
  Country: None (occurrence: None)
  Receive Date: 20110223
  Receipt Date: 20110223
  Transmission Date: 20110831
  Serious: Yes (Other)
  Sender: FDA-Public Use
  Company Number: None

PATIENT
  Sex: Female
  Weight: 79.3795 kg

DRUGS (1)
  1. NAPROXEN [Suspect]
     Indication: ARTHRITIS
     Dosage: DAILY TWICE PO
     Route: 048
     Dates: start: 20110216, end: 20110216

REACTIONS (2)
  - PRURITUS GENERALISED [None]
  - PRODUCT SUBSTITUTION ISSUE [None]
